FAERS Safety Report 19987245 (Version 4)
Quarter: 2022Q2

REPORT INFORMATION
  Report Type: Report from Study
  Country: US (occurrence: US)
  Receive Date: 20211022
  Receipt Date: 20220609
  Transmission Date: 20220721
  Serious: Yes (Hospitalization)
  Sender: FDA-Public Use
  Company Number: US-BRISTOL-MYERS SQUIBB COMPANY-BMS-2021-108135

PATIENT
  Age: 62 Year
  Sex: Female
  Weight: 82 kg

DRUGS (32)
  1. NIVOLUMAB [Suspect]
     Active Substance: NIVOLUMAB
     Indication: Renal cell carcinoma
     Route: 042
     Dates: start: 20210913
  2. AXITINIB [Suspect]
     Active Substance: AXITINIB
     Indication: Renal cell carcinoma
     Dosage: MG
     Route: 048
     Dates: start: 20210913, end: 20210913
  3. AXITINIB [Suspect]
     Active Substance: AXITINIB
     Dosage: MG
     Route: 048
     Dates: start: 20210913, end: 20210913
  4. AXITINIB [Suspect]
     Active Substance: AXITINIB
     Dosage: MG
     Route: 048
     Dates: start: 20211015, end: 20211015
  5. AXITINIB [Suspect]
     Active Substance: AXITINIB
     Dosage: MG
     Route: 048
     Dates: start: 20211015, end: 20211015
  6. VITAMINS [Concomitant]
     Active Substance: VITAMINS
     Indication: Prophylaxis
     Dosage: DAILY; PER DAY
     Route: 048
     Dates: start: 20210921
  7. ASPIRIN [Concomitant]
     Active Substance: ASPIRIN
     Indication: Prophylaxis
     Dosage: DAILY; PER DAY
     Route: 048
     Dates: start: 2021
  8. CALCIUM [Concomitant]
     Active Substance: CALCIUM
     Indication: Prophylaxis
     Dosage: DAILY; PER DAY
     Route: 048
     Dates: start: 20210921
  9. MAGNESIUM [Concomitant]
     Active Substance: MAGNESIUM
     Indication: Prophylaxis
     Dosage: DAILY; PER DAY
     Route: 048
     Dates: start: 20210921
  10. VANCOMYCIN [Concomitant]
     Active Substance: VANCOMYCIN
     Indication: Adverse event
     Dosage: ONCE
     Route: 042
     Dates: start: 20211015, end: 20211015
  11. VITAMIN D2 [Concomitant]
     Active Substance: ERGOCALCIFEROL
     Indication: Prophylaxis
     Dosage: ONE TIME PER WEEK
     Route: 048
     Dates: start: 20190823
  12. BEVESPI AEROSPHERE [Concomitant]
     Active Substance: FORMOTEROL FUMARATE\GLYCOPYRROLATE
     Indication: Product used for unknown indication
     Dosage: 1 DOSAGE FORM = 9 UNITS AS NEEDED
     Route: 055
     Dates: start: 20190903
  13. VITAMINS [Concomitant]
     Active Substance: VITAMINS
     Indication: Product used for unknown indication
     Dosage: DAILY; PER DAY
     Route: 048
     Dates: start: 20210921
  14. IPRATROPIUM BROMIDE AND ALBUTEROL SULFATE [Concomitant]
     Active Substance: ALBUTEROL SULFATE\IPRATROPIUM BROMIDE
     Indication: Product used for unknown indication
     Dosage: AS NEEDED
     Route: 065
     Dates: start: 20210916
  15. AMLODIPINE [Concomitant]
     Active Substance: AMLODIPINE BESYLATE
     Indication: Product used for unknown indication
     Dosage: DAILY; PER DAY
     Route: 048
     Dates: start: 20210927
  16. PREDNISONE [Concomitant]
     Active Substance: PREDNISONE
     Indication: Product used for unknown indication
     Dosage: DAILY; PER DAY
     Route: 048
     Dates: start: 20210928, end: 20211001
  17. FLUTICASONE [Concomitant]
     Active Substance: FLUTICASONE
     Indication: Prophylaxis
     Dosage: 1 DOSAGE FORM = 50 UNITS
     Route: 045
     Dates: start: 20190903
  18. COLACE [Concomitant]
     Active Substance: DOCUSATE SODIUM
     Indication: Prophylaxis
     Dosage: AS NEEDED
     Route: 048
     Dates: start: 202109
  19. FEXOFENIDINE(ALLEGRA) [Concomitant]
     Indication: Product used for unknown indication
     Dosage: AS NEEDED
     Route: 048
     Dates: start: 2021
  20. ASPIRIN [Concomitant]
     Active Substance: ASPIRIN
     Indication: Prophylaxis
     Dosage: 81 MILLIGRAM, QD
     Route: 048
     Dates: start: 2021
  21. TRELEGY ELLIPTA [Concomitant]
     Active Substance: FLUTICASONE FUROATE\UMECLIDINIUM BROMIDE\VILANTEROL TRIFENATATE
     Indication: Product used for unknown indication
     Dosage: 1 DOSAGE FORM= 100 UNITS NOS, AS NEEDED
     Route: 055
     Dates: start: 2021
  22. TYLENOL [Concomitant]
     Active Substance: ACETAMINOPHEN
     Indication: Prophylaxis
     Dosage: 1 DOSAGE FORM= 1 UNITS NOS, AS NEEDED
     Route: 048
     Dates: start: 20210921
  23. AZELASTINE [Concomitant]
     Active Substance: AZELASTINE
     Indication: Product used for unknown indication
     Dosage: 1 DOSAGE FORM= 132 UNITS NOS, BID
     Route: 045
     Dates: start: 20210801
  24. COMPAZINE [Concomitant]
     Active Substance: PROCHLORPERAZINE MALEATE
     Indication: Nausea
     Dosage: 10 MILLIGRAM, AS NEEDED
     Route: 048
     Dates: start: 20210927
  25. PREDNISONE [Concomitant]
     Active Substance: PREDNISONE
     Indication: Asthma
     Dosage: 30 MILLIGRAM, QD
     Route: 048
     Dates: start: 20210928, end: 20211001
  26. PROZAC [Concomitant]
     Active Substance: FLUOXETINE HYDROCHLORIDE
     Indication: Product used for unknown indication
     Dosage: 60 MILLIGRAM, QD
     Route: 048
     Dates: start: 20190823, end: 20220124
  27. ZYRTEC [Concomitant]
     Active Substance: CETIRIZINE HYDROCHLORIDE
     Indication: Prophylaxis
     Dosage: 10 MILLIGRAM, AS NEEDED
     Route: 048
     Dates: start: 2021
  28. SENOKOT [Concomitant]
     Active Substance: SENNOSIDES
     Indication: Prophylaxis
     Dosage: 8.6 MILLIGRAM, AS NEEDED
     Route: 048
     Dates: start: 202109
  29. PFIZER-BIONTECH COVID-19 VACCINE [Concomitant]
     Active Substance: TOZINAMERAN
     Indication: Prophylaxis
     Dosage: UNK
     Route: 030
     Dates: start: 20210402
  30. PFIZER-BIONTECH COVID-19 VACCINE [Concomitant]
     Active Substance: TOZINAMERAN
     Dosage: UNK
     Route: 030
     Dates: start: 20210427
  31. FLUCELVAX NOS [Concomitant]
     Active Substance: INFLUENZA A VIRUS A/BRISBANE/10/2010 (H1N1) ANTIGEN (MDCK CELL DERIVED, PROPIOLACTONE INACTIVATED)\I
     Indication: Prophylaxis
     Dosage: UNK
     Route: 030
     Dates: start: 20211004
  32. FLUCELVAX NOS [Concomitant]
     Active Substance: INFLUENZA A VIRUS A/BRISBANE/10/2010 (H1N1) ANTIGEN (MDCK CELL DERIVED, PROPIOLACTONE INACTIVATED)\I
     Dosage: UNK
     Route: 030
     Dates: start: 20210427

REACTIONS (2)
  - Muscular weakness [Recovered/Resolved]
  - Decreased appetite [Recovered/Resolved]

NARRATIVE: CASE EVENT DATE: 20211015
